FAERS Safety Report 4389601-7 (Version None)
Quarter: 2004Q3

REPORT INFORMATION
  Report Type: 
  Country: None (occurrence: None)
  Receive Date: 20040702
  Receipt Date: 20040625
  Transmission Date: 20050211
  Serious: Yes (Disabling)
  Sender: FDA-Public Use
  Company Number: US-MERCK-0406USA02540

PATIENT
  Sex: Female

DRUGS (3)
  1. XANAX [Concomitant]
     Route: 065
  2. AVALIDE [Concomitant]
     Route: 065
  3. ZOCOR [Suspect]
     Indication: BLOOD CHOLESTEROL INCREASED
     Route: 048
     Dates: end: 20040601

REACTIONS (3)
  - ASTHENIA [None]
  - PAIN IN EXTREMITY [None]
  - TREMOR [None]
